FAERS Safety Report 15688600 (Version 1)
Quarter: 2018Q4

REPORT INFORMATION
  Report Type: Report from Study
  Country: DE (occurrence: DE)
  Receive Date: 20181205
  Receipt Date: 20181205
  Transmission Date: 20190205
  Serious: Yes (Hospitalization)
  Sender: FDA-Public Use
  Company Number: DE-ACCORD-095281

PATIENT
  Age: 66 Year
  Sex: Male

DRUGS (4)
  1. FLUOROURACIL. [Suspect]
     Active Substance: FLUOROURACIL
     Indication: COLORECTAL CANCER METASTATIC
     Dosage: ALSO RECEIVED 1900 MG IV
     Route: 040
     Dates: start: 20180103
  2. PANITUMUMAB [Suspect]
     Active Substance: PANITUMUMAB
     Indication: COLORECTAL CANCER METASTATIC
     Dosage: 360 MG, UNK
     Route: 042
     Dates: start: 20180103
  3. IRINOTECAN [Suspect]
     Active Substance: IRINOTECAN
     Indication: COLORECTAL CANCER METASTATIC
     Route: 065
     Dates: start: 20180103
  4. FOLINIC ACID [Suspect]
     Active Substance: LEUCOVORIN
     Indication: COLORECTAL CANCER METASTATIC
     Dosage: 650 MG, UNK
     Route: 065
     Dates: start: 20180103

REACTIONS (2)
  - Vena cava thrombosis [Not Recovered/Not Resolved]
  - Subclavian vein thrombosis [Not Recovered/Not Resolved]

NARRATIVE: CASE EVENT DATE: 20180114
